FAERS Safety Report 15172929 (Version 6)
Quarter: 2019Q2

REPORT INFORMATION
  Report Type: Spontaneous
  Country: US (occurrence: US)
  Receive Date: 20180720
  Receipt Date: 20190514
  Transmission Date: 20190711
  Serious: Yes (Hospitalization, Other)
  Sender: FDA-Public Use
  Company Number: US-VIFOR (INTERNATIONAL) INC.-VIT-2018-07150

PATIENT
  Age: 73 Year
  Sex: Female
  Weight: 63.6 kg

DRUGS (21)
  1. COENZYME Q10 [Concomitant]
     Active Substance: UBIDECARENONE
  2. LEVEMIR [Concomitant]
     Active Substance: INSULIN DETEMIR
  3. VELTASSA [Suspect]
     Active Substance: PATIROMER
     Dates: start: 20180619
  4. VELTASSA [Suspect]
     Active Substance: PATIROMER
     Dates: start: 201806
  5. VELTASSA [Suspect]
     Active Substance: PATIROMER
     Indication: HYPERKALAEMIA
     Route: 048
  6. CARVEDILOL. [Concomitant]
     Active Substance: CARVEDILOL
  7. STOOL SOFTENER (DOCUSATE) [Concomitant]
     Active Substance: DOCUSATE
  8. BUPROPION. [Concomitant]
     Active Substance: BUPROPION
  9. FERROUS SULFATE. [Concomitant]
     Active Substance: FERROUS SULFATE
  10. HYDRALAZINE HYDROCHLORIDE. [Concomitant]
     Active Substance: HYDRALAZINE HYDROCHLORIDE
     Route: 048
  11. PLAVIX [Concomitant]
     Active Substance: CLOPIDOGREL BISULFATE
  12. ISOSORBIDE MONONITRATE. [Concomitant]
     Active Substance: ISOSORBIDE MONONITRATE
  13. HYDRALAZINE HYDROCHLORIDE. [Concomitant]
     Active Substance: HYDRALAZINE HYDROCHLORIDE
  14. VELTASSA [Suspect]
     Active Substance: PATIROMER
     Route: 048
     Dates: start: 20180717
  15. MAGNESIUM [Concomitant]
     Active Substance: MAGNESIUM
  16. ASPIRIN. [Concomitant]
     Active Substance: ASPIRIN
  17. COENZYME Q10 [Concomitant]
     Active Substance: UBIDECARENONE
     Route: 048
  18. FISH OIL [Concomitant]
     Active Substance: FISH OIL
  19. PROTONIX [Concomitant]
     Active Substance: PANTOPRAZOLE SODIUM
  20. RED YEAST RICE [Concomitant]
     Active Substance: DIETARY SUPPLEMENT
  21. ZOFRAN [Concomitant]
     Active Substance: ONDANSETRON HYDROCHLORIDE
     Route: 042
     Dates: end: 20180619

REACTIONS (20)
  - Cholecystectomy [Unknown]
  - Ear disorder [Unknown]
  - Pyrexia [Unknown]
  - Dyspnoea [Recovered/Resolved]
  - Cough [Unknown]
  - Atypical pneumonia [Recovered/Resolved]
  - Product taste abnormal [Unknown]
  - Malaise [Unknown]
  - Off label use [Unknown]
  - Muscle spasms [Unknown]
  - Constipation [Unknown]
  - Chest pain [Recovered/Resolved]
  - Influenza [Recovered/Resolved]
  - Chills [Unknown]
  - Troponin increased [Unknown]
  - Vomiting [Recovered/Resolved]
  - Diarrhoea [Recovered/Resolved]
  - Stress [Unknown]
  - Product dose omission [Unknown]
  - Nausea [Recovered/Resolved]

NARRATIVE: CASE EVENT DATE: 2018
